FAERS Safety Report 21848629 (Version 3)
Quarter: 2023Q1

REPORT INFORMATION
  Report Type: Spontaneous
  Country: JP (occurrence: JP)
  Receive Date: 20230111
  Receipt Date: 20230122
  Transmission Date: 20230418
  Serious: Yes (Other)
  Sender: FDA-Public Use
  Company Number: JP-JNJFOC-20230116305

PATIENT

DRUGS (1)
  1. SIMPONI [Suspect]
     Active Substance: GOLIMUMAB
     Indication: Product used for unknown indication
     Dosage: DOSE UNKNOWN?50.00 MG / 0.50 ML
     Route: 058

REACTIONS (5)
  - Device deployment issue [Unknown]
  - Administration site infection [Unknown]
  - Injury associated with device [Unknown]
  - Underdose [Unknown]
  - Needle issue [Unknown]

NARRATIVE: CASE EVENT DATE: 20221112
